FAERS Safety Report 10095044 (Version 3)
Quarter: 2014Q2

REPORT INFORMATION
  Report Type: Spontaneous
  Country: US (occurrence: US)
  Receive Date: 20140422
  Receipt Date: 20140422
  Transmission Date: 20141212
  Serious: Yes (Hospitalization, Other)
  Sender: FDA-Public Use
  Company Number: US-BAYER-US-2007-022168

PATIENT
  Age: 20 Year
  Sex: Female
  Weight: 48.98 kg

DRUGS (5)
  1. MIRENA [Suspect]
     Dosage: 20 ?G/DAY, CONT
     Route: 015
     Dates: start: 20060919, end: 20070305
  2. CLINDAMYCIN [Concomitant]
     Dosage: 150 MG, TID
  3. MOTRIN [Concomitant]
  4. CIPRO [Concomitant]
  5. DARVOCET-N [Concomitant]

REACTIONS (15)
  - Device dislocation [Recovered/Resolved]
  - Intestinal perforation [Recovered/Resolved]
  - Procedural pain [Recovered/Resolved]
  - Presyncope [Recovered/Resolved]
  - Abdominal pain [Recovered/Resolved]
  - Abdominal pain lower [Recovered/Resolved]
  - Genital haemorrhage [None]
  - Injury [Recovered/Resolved]
  - Pain [Recovered/Resolved]
  - Emotional distress [None]
  - Device dislocation [Recovered/Resolved]
  - Dyspareunia [None]
  - Anxiety [None]
  - Depression [None]
  - Device issue [None]
